FAERS Safety Report 6205555-2 (Version None)
Quarter: 2009Q2

REPORT INFORMATION
  Report Type: 
  Country: None (occurrence: None)
  Receive Date: 20090527
  Receipt Date: 20090402
  Transmission Date: 20091009
  Serious: Yes (Hospitalization, Other)
  Sender: FDA-Public Use
  Company Number: US-ABBOTT-09P-163-0566091-00

PATIENT
  Sex: Male
  Weight: 82.628 kg

DRUGS (7)
  1. SIMCOR [Suspect]
     Indication: BLOOD CHOLESTEROL INCREASED
     Dosage: 500/20
     Route: 048
     Dates: start: 20081201, end: 20081201
  2. SIMCOR [Suspect]
     Route: 048
     Dates: start: 20090331, end: 20090331
  3. LEVOTHYROXINE SODIUM [Concomitant]
     Indication: THYROIDECTOMY
     Route: 048
  4. LEVOTHYROXINE SODIUM [Concomitant]
     Indication: GOITRE
  5. AZOR [Concomitant]
     Indication: HYPERTENSION
     Dosage: 10/40
     Route: 048
  6. PAROXETINE HCL [Concomitant]
     Indication: ANGER
     Route: 048
  7. INDOMETHACIN [Concomitant]
     Indication: INFLAMMATION
     Route: 048

REACTIONS (6)
  - ARTHRITIS [None]
  - BURNING SENSATION [None]
  - DYSPNOEA [None]
  - GENERALISED ERYTHEMA [None]
  - HYPERTENSION [None]
  - PRURITUS [None]
